FAERS Safety Report 18876034 (Version 4)
Quarter: 2021Q3

REPORT INFORMATION
  Report Type: Report from Study
  Country: IE (occurrence: IE)
  Receive Date: 20210210
  Receipt Date: 20210709
  Transmission Date: 20211014
  Serious: Yes (Other)
  Sender: FDA-Public Use
  Company Number: IE-BAUSCH-BL-2020-015212

PATIENT
  Age: 59 Year
  Sex: Male

DRUGS (31)
  1. KYPROLIS [Suspect]
     Active Substance: CARFILZOMIB
     Route: 042
     Dates: start: 20200616
  2. KYPROLIS [Suspect]
     Active Substance: CARFILZOMIB
     Route: 042
  3. TARGIN [Concomitant]
     Active Substance: NALOXONE HYDROCHLORIDE\OXYCODONE HYDROCHLORIDE
     Indication: PRODUCT USED FOR UNKNOWN INDICATION
     Dosage: AS NECESSARY
  4. KYPROLIS [Suspect]
     Active Substance: CARFILZOMIB
     Route: 042
  5. KYPROLIS [Suspect]
     Active Substance: CARFILZOMIB
     Route: 042
  6. KYPROLIS [Suspect]
     Active Substance: CARFILZOMIB
     Route: 042
     Dates: start: 20210518
  7. IDEOS [Concomitant]
     Active Substance: CALCIUM CARBONATE\CHOLECALCIFEROL
     Indication: PRODUCT USED FOR UNKNOWN INDICATION
     Dosage: 1 APPLICATION, 2 UNSPECIFIED UNIT
  8. VALACICLOVIR [Concomitant]
     Active Substance: VALACYCLOVIR HYDROCHLORIDE
     Indication: PRODUCT USED FOR UNKNOWN INDICATION
  9. KYPROLIS [Suspect]
     Active Substance: CARFILZOMIB
     Route: 042
  10. KYPROLIS [Suspect]
     Active Substance: CARFILZOMIB
     Route: 042
  11. KYPROLIS [Suspect]
     Active Substance: CARFILZOMIB
     Route: 042
  12. KYPROLIS [Suspect]
     Active Substance: CARFILZOMIB
     Route: 042
     Dates: start: 20210615
  13. DEXAMETHASONE. [Suspect]
     Active Substance: DEXAMETHASONE
     Route: 065
  14. KYPROLIS [Suspect]
     Active Substance: CARFILZOMIB
     Route: 042
     Dates: start: 20200512
  15. KYPROLIS [Suspect]
     Active Substance: CARFILZOMIB
     Route: 042
     Dates: start: 20200609
  16. KYPROLIS [Suspect]
     Active Substance: CARFILZOMIB
     Route: 042
  17. KYPROLIS [Suspect]
     Active Substance: CARFILZOMIB
     Route: 042
  18. POMALIDOMIDE [Suspect]
     Active Substance: POMALIDOMIDE
     Indication: PLASMA CELL MYELOMA
     Dosage: DAYS 1?21
     Route: 065
     Dates: start: 20200320
  19. SEPTRIN [Concomitant]
     Active Substance: SULFAMETHOXAZOLE\TRIMETHOPRIM
     Indication: PRODUCT USED FOR UNKNOWN INDICATION
  20. DEXAMETHASONE. [Suspect]
     Active Substance: DEXAMETHASONE
     Indication: PLASMA CELL MYELOMA
     Route: 065
     Dates: start: 20200320
  21. KYPROLIS [Suspect]
     Active Substance: CARFILZOMIB
     Indication: PLASMA CELL MYELOMA
     Dosage: DAY 1, 8 AND 15
     Route: 042
     Dates: start: 20200320
  22. KYPROLIS [Suspect]
     Active Substance: CARFILZOMIB
     Route: 042
     Dates: start: 20200707
  23. KYPROLIS [Suspect]
     Active Substance: CARFILZOMIB
     Route: 042
  24. KYPROLIS [Suspect]
     Active Substance: CARFILZOMIB
     Route: 042
  25. KYPROLIS [Suspect]
     Active Substance: CARFILZOMIB
     Route: 042
  26. PARACETAMOL [Concomitant]
     Active Substance: ACETAMINOPHEN
     Indication: PRODUCT USED FOR UNKNOWN INDICATION
     Dosage: AS NECESSARY (PRN)
  27. KYPROLIS [Suspect]
     Active Substance: CARFILZOMIB
     Route: 042
  28. KYPROLIS [Suspect]
     Active Substance: CARFILZOMIB
     Route: 042
  29. KYPROLIS [Suspect]
     Active Substance: CARFILZOMIB
     Route: 042
  30. ASPIRIN (ACETYLSALICYLIC ACID) [Concomitant]
     Active Substance: ASPIRIN
     Indication: PRODUCT USED FOR UNKNOWN INDICATION
  31. ESOMEPRAZOLE. [Concomitant]
     Active Substance: ESOMEPRAZOLE MAGNESIUM
     Indication: PRODUCT USED FOR UNKNOWN INDICATION

REACTIONS (8)
  - Muscle spasms [Recovering/Resolving]
  - Cataract [Not Recovered/Not Resolved]
  - Haemoglobin decreased [Unknown]
  - Depressed mood [Not Recovered/Not Resolved]
  - Off label use [Unknown]
  - Hypoaesthesia [Not Recovered/Not Resolved]
  - Blood pressure increased [Unknown]
  - Muscle atrophy [Not Recovered/Not Resolved]

NARRATIVE: CASE EVENT DATE: 2020
